FAERS Safety Report 20463766 (Version 1)
Quarter: 2022Q1

REPORT INFORMATION
  Report Type: Spontaneous
  Country: US (occurrence: US)
  Receive Date: 20220211
  Receipt Date: 20220211
  Transmission Date: 20220423
  Serious: Yes (Death, Other)
  Sender: FDA-Public Use
  Company Number: US-NOVARTISPH-NVSC2022US030927

PATIENT
  Age: 53 Year
  Sex: Male

DRUGS (4)
  1. RANITIDINE [Suspect]
     Active Substance: RANITIDINE
     Dosage: 150 MG,300 MG,N/A,DAILY,N/A
     Route: 048
     Dates: start: 200301, end: 201801
  2. RANITIDINE [Suspect]
     Active Substance: RANITIDINE
     Indication: Dyspepsia
  3. RANITIDINE [Suspect]
     Active Substance: RANITIDINE
     Dosage: 150 MG,300 MG,N/A,DAILY,N/A
     Route: 048
     Dates: start: 200301, end: 201801
  4. RANITIDINE [Suspect]
     Active Substance: RANITIDINE
     Indication: Dyspepsia

REACTIONS (3)
  - Lung neoplasm malignant [Unknown]
  - Prostate cancer [Unknown]
  - Death [Fatal]

NARRATIVE: CASE EVENT DATE: 20110701
